FAERS Safety Report 21047397 (Version 1)
Quarter: 2022Q3

REPORT INFORMATION
  Report Type: Spontaneous
  Country: ES (occurrence: None)
  Receive Date: 20220706
  Receipt Date: 20220706
  Transmission Date: 20221026
  Serious: Yes (Hospitalization, Disabling)
  Sender: FDA-Public Use
  Company Number: 2022A236092

PATIENT
  Age: 46 Year
  Sex: Male
  Weight: 103 kg

DRUGS (5)
  1. DAPAGLIFLOZIN PROPANEDIOL\METFORMIN HYDROCHLORIDE [Suspect]
     Active Substance: DAPAGLIFLOZIN PROPANEDIOL\METFORMIN HYDROCHLORIDE
     Indication: Type 2 diabetes mellitus
     Route: 048
     Dates: start: 20200203
  2. OMEPRAZOLE [Concomitant]
     Active Substance: OMEPRAZOLE
     Indication: Dyspepsia
     Dosage: 1 CAPSULE EVERY DAY
  3. LANTUS SOLOSTAR [Concomitant]
     Active Substance: INSULIN GLARGINE
     Indication: Diabetes mellitus
     Dosage: 0IU AT DINNER, 0IU AT BREAKFAST, 50IU AT FOOD
     Dates: start: 20181127
  4. TRULICITY [Concomitant]
     Active Substance: DULAGLUTIDE
     Dosage: 1 CARTRIDGE/PEN EVERY 7 DAYS
  5. ASPIRIN [Concomitant]
     Active Substance: ASPIRIN
     Indication: Arteriosclerosis
     Dosage: 1 TABLET EVERY DAY

REACTIONS (1)
  - Toe amputation [Recovering/Resolving]

NARRATIVE: CASE EVENT DATE: 20201221
